FAERS Safety Report 7350793-9 (Version None)
Quarter: 2011Q1

REPORT INFORMATION
  Report Type: 
  Country: None (occurrence: None)
  Receive Date: 20110314
  Receipt Date: 20110309
  Transmission Date: 20110831
  Serious: No
  Sender: FDA-Public Use
  Company Number: US-PFIZER INC-2011040465

PATIENT
  Sex: Female
  Weight: 83.9 kg

DRUGS (7)
  1. PROTONIX [Suspect]
     Indication: GASTROOESOPHAGEAL REFLUX DISEASE
     Dosage: 40 MG, 1X/DAY
     Route: 048
     Dates: start: 20101201, end: 20110201
  2. LEVOTHYROXINE [Concomitant]
     Indication: THYROID DISORDER
  3. SYNTHROID [Concomitant]
     Indication: AUTOIMMUNE THYROIDITIS
     Dosage: 200 UG, 1X/DAY
     Route: 048
  4. DIOVAN HCT [Concomitant]
     Indication: HYPERTENSION
     Dosage: 12.5/80 MG, DAILY
     Route: 048
  5. SYNTHROID [Concomitant]
     Indication: THYROID DISORDER
  6. LIRAGLUTIDE (NN2211) [Concomitant]
     Indication: DIABETES MELLITUS INADEQUATE CONTROL
     Dosage: 1.2 MG, UNK
     Route: 030
  7. LEVOTHYROXINE [Concomitant]
     Indication: AUTOIMMUNE THYROIDITIS
     Dosage: 25 UG, 1X/DAY
     Route: 048

REACTIONS (3)
  - ARTHRALGIA [None]
  - DRUG ADMINISTRATION ERROR [None]
  - MUSCULOSKELETAL DISCOMFORT [None]
